FAERS Safety Report 5546770-0 (Version None)
Quarter: 2007Q4

REPORT INFORMATION
  Report Type: 
  Country: None (occurrence: None)
  Receive Date: 20071207
  Receipt Date: 20071207
  Transmission Date: 20080405
  Serious: Yes (Hospitalization, Disabling)
  Sender: FDA-Public Use
  Company Number: None

PATIENT
  Age: 53 Year
  Sex: Female
  Weight: 86.1834 kg

DRUGS (1)
  1. NEXIUM [Suspect]
     Indication: GASTROOESOPHAGEAL REFLUX DISEASE
     Dosage: 1 PILL DAILY
     Dates: start: 19900101, end: 20071206

REACTIONS (5)
  - BONE DISORDER [None]
  - DIARRHOEA [None]
  - ECONOMIC PROBLEM [None]
  - HIP FRACTURE [None]
  - LOSS OF EMPLOYMENT [None]
